FAERS Safety Report 24905196 (Version 1)
Quarter: 2025Q1

REPORT INFORMATION
  Report Type: Spontaneous
  Country: HU (occurrence: HU)
  Receive Date: 20250130
  Receipt Date: 20250130
  Transmission Date: 20250408
  Serious: Yes (Death)
  Sender: NOVARTIS
  Company Number: HU-002147023-NVSC2025HU016024

PATIENT
  Sex: Male

DRUGS (12)
  1. TRAMETINIB [Suspect]
     Active Substance: TRAMETINIB
     Indication: Erdheim-Chester disease
     Route: 065
  2. TRAMETINIB [Suspect]
     Active Substance: TRAMETINIB
     Indication: Central nervous system lesion
  3. VEMURAFENIB [Concomitant]
     Active Substance: VEMURAFENIB
     Indication: Erdheim-Chester disease
     Route: 065
  4. VEMURAFENIB [Concomitant]
     Active Substance: VEMURAFENIB
     Indication: Central nervous system lesion
  5. AZATHIOPRINE [Concomitant]
     Active Substance: AZATHIOPRINE
     Indication: Erdheim-Chester disease
     Route: 065
  6. AZATHIOPRINE [Concomitant]
     Active Substance: AZATHIOPRINE
     Indication: Central nervous system lesion
  7. METRONIDAZOLE [Concomitant]
     Active Substance: METRONIDAZOLE
     Indication: Erdheim-Chester disease
     Route: 065
  8. METRONIDAZOLE [Concomitant]
     Active Substance: METRONIDAZOLE
     Indication: Central nervous system lesion
  9. BACLOFEN [Concomitant]
     Active Substance: BACLOFEN
     Indication: Erdheim-Chester disease
     Route: 065
  10. BACLOFEN [Concomitant]
     Active Substance: BACLOFEN
     Indication: Central nervous system lesion
  11. SULFAMETHOXAZOLE\TRIMETHOPRIM [Concomitant]
     Active Substance: SULFAMETHOXAZOLE\TRIMETHOPRIM
     Indication: Erdheim-Chester disease
     Route: 065
  12. SULFAMETHOXAZOLE\TRIMETHOPRIM [Concomitant]
     Active Substance: SULFAMETHOXAZOLE\TRIMETHOPRIM
     Indication: Central nervous system lesion

REACTIONS (3)
  - Death [Fatal]
  - General physical health deterioration [Unknown]
  - Off label use [Unknown]
